FAERS Safety Report 5122821-2 (Version None)
Quarter: 2006Q4

REPORT INFORMATION
  Report Type: 
  Country: None (occurrence: None)
  Receive Date: 20061009
  Receipt Date: 20060925
  Transmission Date: 20070319
  Serious: Yes (Disabling)
  Sender: FDA-Public Use
  Company Number: PHRM2006FR02682

PATIENT
  Age: 37 Year
  Sex: Male

DRUGS (3)
  1. LIORESAL [Suspect]
     Indication: MUSCLE SPASMS
     Dosage: 30 MG/DAY
     Route: 048
     Dates: start: 20010101
  2. LIORESAL [Suspect]
     Dosage: 60 MG/DAY
     Route: 048
  3. LIORESAL [Suspect]
     Dosage: 90 MG/DAY
     Route: 048

REACTIONS (7)
  - ABASIA [None]
  - ANXIETY [None]
  - APHASIA [None]
  - CONDITION AGGRAVATED [None]
  - DYSPHAGIA [None]
  - DYSPNOEA [None]
  - HEREDITARY ATAXIA [None]
